FAERS Safety Report 12660917 (Version 2)
Quarter: 2016Q3

REPORT INFORMATION
  Report Type: Spontaneous
  Country: US (occurrence: US)
  Receive Date: 20160817
  Receipt Date: 20160901
  Transmission Date: 20161109
  Serious: No
  Sender: FDA-Public Use
  Company Number: US-RELYPSA-RLY2016001370

PATIENT
  Sex: Female

DRUGS (9)
  1. HUMALOG MIX [Concomitant]
     Active Substance: INSULIN LISPRO
  2. CRANBERRY                          /01512301/ [Concomitant]
     Active Substance: CRANBERRY
  3. ZOLOFT [Concomitant]
     Active Substance: SERTRALINE HYDROCHLORIDE
  4. ASPIRIN 81 [Concomitant]
     Active Substance: ASPIRIN
  5. VELTASSA [Suspect]
     Active Substance: PATIROMER
     Indication: HYPERKALAEMIA
     Dosage: 16.8 G, QD
     Route: 048
     Dates: start: 20160329
  6. LEVEMIR [Concomitant]
     Active Substance: INSULIN DETEMIR
  7. XYZAL [Concomitant]
     Active Substance: LEVOCETIRIZINE DIHYDROCHLORIDE
  8. LOSARTAN POTASSIUM. [Concomitant]
     Active Substance: LOSARTAN POTASSIUM
  9. CRESTOR [Concomitant]
     Active Substance: ROSUVASTATIN CALCIUM

REACTIONS (2)
  - Drug ineffective [Unknown]
  - No adverse event [Unknown]

NARRATIVE: CASE EVENT DATE: 2016
